FAERS Safety Report 9678234 (Version 1)
Quarter: 2013Q4

REPORT INFORMATION
  Report Type: Spontaneous
  Country: JP (occurrence: JP)
  Receive Date: 20131108
  Receipt Date: 20131108
  Transmission Date: 20140711
  Serious: Yes (Other)
  Sender: FDA-Public Use
  Company Number: JP-ASTRAZENECA-2013SE80615

PATIENT
  Age: 82 Year
  Sex: Female
  Weight: 62 kg

DRUGS (2)
  1. ANAPEINE [Suspect]
     Dosage: CONTINUOUS INFUSION OF 300 ML
     Route: 008
  2. MORPHINE [Suspect]
     Dosage: 10 MG AT 4 ML PER HOUR
     Route: 008

REACTIONS (3)
  - Oxygen saturation decreased [Unknown]
  - Loss of consciousness [Unknown]
  - Pulmonary embolism [Recovering/Resolving]
